FAERS Safety Report 6160493-9 (Version None)
Quarter: 2009Q2

REPORT INFORMATION
  Report Type: 
  Country: None (occurrence: None)
  Receive Date: 20090415
  Receipt Date: 20090415
  Transmission Date: 20091009
  Serious: Yes (Death, Other)
  Sender: FDA-Public Use
  Company Number: None

PATIENT
  Age: 74 Year
  Sex: Male
  Weight: 95 kg

DRUGS (7)
  1. GEMCITABINE [Suspect]
     Indication: PANCREATIC CARCINOMA METASTATIC
     Dosage: 1000 MG/M**2 QW IV
     Route: 042
     Dates: start: 20090302, end: 20090302
  2. PLACEBO SOLUTION FOR INFUSION [Suspect]
     Indication: PANCREATIC CARCINOMA METASTATIC
     Dosage: 4 MG/KG Q2W IV
     Route: 042
     Dates: start: 20090302, end: 20090302
  3. ACETAMINOPHEN [Concomitant]
  4. ESOMEPRAZOLE MAGNESIUM [Concomitant]
  5. METOPROLOL TARTRATE [Concomitant]
  6. . [Concomitant]
  7. . [Concomitant]

REACTIONS (3)
  - CARDIAC ARREST [None]
  - PUPIL FIXED [None]
  - VENTRICULAR FIBRILLATION [None]
